FAERS Safety Report 17096255 (Version 1)
Quarter: 2019Q4

REPORT INFORMATION
  Report Type: Spontaneous
  Country: CA (occurrence: CA)
  Receive Date: 20191202
  Receipt Date: 20191202
  Transmission Date: 20200122
  Serious: Yes (Other)
  Sender: FDA-Public Use
  Company Number: CA-ORION CORPORATION ORION PHARMA-TREX2019-5780

PATIENT
  Age: 35 Year
  Sex: Male
  Weight: 61 kg

DRUGS (5)
  1. VITAMIN B12 [Concomitant]
     Active Substance: CYANOCOBALAMIN
     Route: 065
  2. METHOTREXATE (TRADE NAME UNKNOWN) [Suspect]
     Active Substance: METHOTREXATE
     Indication: PRODUCT USED FOR UNKNOWN INDICATION
     Route: 048
     Dates: start: 20191105
  3. ENTOCORT [Concomitant]
     Active Substance: BUDESONIDE
     Route: 065
     Dates: start: 20191105
  4. FOLIC ACID. [Concomitant]
     Active Substance: FOLIC ACID
     Route: 065
     Dates: start: 201911
  5. VITAMIN D [Concomitant]
     Active Substance: VITAMIN D NOS
     Route: 065

REACTIONS (9)
  - Haemophagocytic lymphohistiocytosis [Unknown]
  - Muscle spasms [Unknown]
  - Myalgia [Unknown]
  - Drug intolerance [Unknown]
  - Nausea [Unknown]
  - Dizziness [Unknown]
  - Abdominal pain [Unknown]
  - Impaired driving ability [Unknown]
  - Diarrhoea [Unknown]
